FAERS Safety Report 18701410 (Version 3)
Quarter: 2021Q1

REPORT INFORMATION
  Report Type: Report from Study
  Country: VN (occurrence: VN)
  Receive Date: 20210105
  Receipt Date: 20210212
  Transmission Date: 20210419
  Serious: Yes (Hospitalization)
  Sender: FDA-Public Use
  Company Number: VN-ASTRAZENECA-2020SF74742

PATIENT
  Age: 21627 Day
  Sex: Male

DRUGS (29)
  1. SODIUM CHLORIDE 0.9% [Concomitant]
     Active Substance: SODIUM CHLORIDE
     Indication: SUPPLEMENTATION THERAPY
     Route: 042
     Dates: start: 20201119, end: 20201126
  2. MEDIPHYLAMIN [Concomitant]
     Indication: SUPPLEMENTATION THERAPY
     Route: 048
     Dates: start: 20200902, end: 20200908
  3. ACETATE RINGER [Concomitant]
     Indication: SUPPLEMENTATION THERAPY
     Route: 042
     Dates: start: 20200922, end: 20201001
  4. CEFUROXIM [Concomitant]
     Active Substance: CEFUROXIME
     Indication: OROPHARYNGEAL PAIN
     Route: 048
     Dates: start: 20201014, end: 20201018
  5. DIAMICRON MR [Concomitant]
     Active Substance: GLICLAZIDE
     Indication: TYPE 2 DIABETES MELLITUS
     Route: 048
     Dates: start: 20201121, end: 20201126
  6. SODIUM CHLORIDE 0.9% [Concomitant]
     Active Substance: SODIUM CHLORIDE
     Indication: SUPPLEMENTATION THERAPY
     Route: 042
     Dates: start: 20200922, end: 20201001
  7. ACETATE RINGER [Concomitant]
     Indication: SUPPLEMENTATION THERAPY
     Route: 042
     Dates: start: 20201119, end: 20201126
  8. ALPHA CHYMOTRYPSIN [Concomitant]
     Active Substance: CHYMOTRYPSIN
     Indication: OROPHARYNGEAL PAIN
     Route: 048
     Dates: start: 20201014, end: 20201018
  9. GLICIAZID [Concomitant]
     Indication: TYPE 2 DIABETES MELLITUS
     Route: 048
     Dates: end: 20201119
  10. HEPA?MERZ [Concomitant]
     Indication: HEPATIC ENZYME ABNORMAL
     Route: 042
     Dates: start: 20201117, end: 20201126
  11. MEDIPHYLAMIN [Concomitant]
     Indication: SUPPLEMENTATION THERAPY
     Route: 048
     Dates: start: 20201005, end: 20201006
  12. L?ORNITHIN L?ASPARTAT [Concomitant]
     Indication: LIVER DISORDER
     Route: 048
     Dates: start: 20201002, end: 20201011
  13. THYMOMODULIN [Concomitant]
     Indication: COMBINED IMMUNODEFICIENCY
     Route: 048
     Dates: start: 20201127, end: 20201210
  14. ACALABRUTINIB. [Suspect]
     Active Substance: ACALABRUTINIB
     Indication: CHRONIC LYMPHOCYTIC LEUKAEMIA
     Route: 048
     Dates: start: 20201208, end: 20201222
  15. OMNIPAQUE [Concomitant]
     Active Substance: IOHEXOL
     Indication: COMPUTERISED TOMOGRAM
     Dosage: 24.0MG ONCE/SINGLE ADMINISTRATION
     Route: 042
     Dates: start: 20200907, end: 20200907
  16. LIDOCAIN 2% [Concomitant]
     Indication: ANAESTHESIA
     Dosage: 2.0 OTHER VIAL ONCE/SINGLE ADMINISTRATION
     Route: 061
     Dates: start: 20200903, end: 20200903
  17. LORATADIN [Concomitant]
     Active Substance: LORATADINE
     Indication: OROPHARYNGEAL PAIN
     Route: 048
     Dates: start: 20201014, end: 20201018
  18. L?ORNITHIN L?ASPARTAT [Concomitant]
     Indication: LIVER DISORDER
     Route: 048
     Dates: start: 20201127, end: 20201210
  19. THYMOMODULIN [Concomitant]
     Indication: COMBINED IMMUNODEFICIENCY
     Route: 048
     Dates: start: 20201103, end: 20201116
  20. ACALABRUTINIB. [Suspect]
     Active Substance: ACALABRUTINIB
     Indication: CHRONIC LYMPHOCYTIC LEUKAEMIA
     Route: 048
     Dates: start: 20201103, end: 20201118
  21. TELMISARTAN. [Concomitant]
     Active Substance: TELMISARTAN
     Indication: HYPERTENSION
     Route: 048
     Dates: start: 20201127
  22. L?ORNITHIN L?ASPARTAT [Concomitant]
     Indication: LIVER DISORDER
     Route: 048
     Dates: start: 20201103, end: 20201116
  23. SODIUM CHLORIDE 0.9% [Concomitant]
     Active Substance: SODIUM CHLORIDE
     Indication: SUPPLEMENTATION THERAPY
     Route: 042
     Dates: start: 20201007, end: 20201012
  24. ACETATE RINGER [Concomitant]
     Indication: SUPPLEMENTATION THERAPY
     Route: 042
     Dates: start: 20201007, end: 20201012
  25. ACALABRUTINIB. [Suspect]
     Active Substance: ACALABRUTINIB
     Indication: CHRONIC LYMPHOCYTIC LEUKAEMIA
     Route: 048
     Dates: start: 20201005, end: 20201102
  26. ACALABRUTINIB. [Suspect]
     Active Substance: ACALABRUTINIB
     Indication: CHRONIC LYMPHOCYTIC LEUKAEMIA
     Route: 048
     Dates: start: 20210105, end: 20210120
  27. ACALABRUTINIB. [Suspect]
     Active Substance: ACALABRUTINIB
     Indication: CHRONIC LYMPHOCYTIC LEUKAEMIA
     Route: 048
     Dates: start: 20210203
  28. TELMISARTAN. [Concomitant]
     Active Substance: TELMISARTAN
     Indication: HYPERTENSION
     Route: 048
     Dates: end: 20201119
  29. GLICIAZID [Concomitant]
     Indication: TYPE 2 DIABETES MELLITUS
     Route: 048
     Dates: start: 20201127

REACTIONS (1)
  - Hepatic enzyme increased [Recovering/Resolving]

NARRATIVE: CASE EVENT DATE: 20201221
